FAERS Safety Report 6067678-0 (Version None)
Quarter: 2009Q1

REPORT INFORMATION
  Report Type: 
  Country: None (occurrence: None)
  Receive Date: 20090205
  Receipt Date: 20081211
  Transmission Date: 20090719
  Serious: Yes (Hospitalization)
  Sender: FDA-Public Use
  Company Number: US-BAXTER-2008BH012939

PATIENT
  Age: 60 Year
  Sex: Female

DRUGS (4)
  1. DIANEAL [Suspect]
     Indication: PERITONEAL DIALYSIS
     Route: 033
     Dates: end: 20080101
  2. DIANEAL [Suspect]
     Route: 033
     Dates: start: 20080101
  3. DIANEAL [Suspect]
     Indication: PERITONEAL DIALYSIS
     Route: 033
     Dates: end: 20080101
  4. DIANEAL [Suspect]
     Route: 033
     Dates: start: 20080101

REACTIONS (2)
  - CONVULSION [None]
  - GASTROINTESTINAL OBSTRUCTION [None]
